FAERS Safety Report 10631813 (Version 1)
Quarter: 2014Q4

REPORT INFORMATION
  Report Type: Spontaneous
  Country: US (occurrence: US)
  Receive Date: 20141205
  Receipt Date: 20141205
  Transmission Date: 20150529
  Serious: No
  Sender: FDA-Public Use
  Company Number: US-BRISTOL-MYERS SQUIBB COMPANY-21482252

PATIENT
  Age: 65 Year
  Sex: Female
  Weight: 100.22 kg

DRUGS (4)
  1. TRIAMTERENE + HCTZ [Concomitant]
  2. FARXIGA [Suspect]
     Active Substance: DAPAGLIFLOZIN PROPANEDIOL
     Indication: TYPE 2 DIABETES MELLITUS
     Route: 048
  3. RAMIPRIL. [Concomitant]
     Active Substance: RAMIPRIL
  4. CRESTOR [Concomitant]
     Active Substance: ROSUVASTATIN CALCIUM

REACTIONS (5)
  - Oropharyngeal pain [Unknown]
  - Bladder pain [Unknown]
  - Bladder irritation [Unknown]
  - Rhinorrhoea [Unknown]
  - Blood glucose increased [Unknown]
